FAERS Safety Report 13045751 (Version 1)
Quarter: 2016Q4

REPORT INFORMATION
  Report Type: Spontaneous
  Country: US (occurrence: US)
  Receive Date: 20161220
  Receipt Date: 20161220
  Transmission Date: 20170207
  Serious: No
  Sender: FDA-Public Use
  Company Number: US-009507513-1612USA004351

PATIENT
  Sex: Female

DRUGS (1)
  1. NEXPLANON [Suspect]
     Active Substance: ETONOGESTREL
     Indication: CONTRACEPTION
     Dosage: UNK
     Route: 059
     Dates: start: 20161110

REACTIONS (3)
  - Implant site swelling [Recovered/Resolved]
  - Implant site pruritus [Recovered/Resolved]
  - Implant site erythema [Not Recovered/Not Resolved]

NARRATIVE: CASE EVENT DATE: 20161206
